FAERS Safety Report 9618934 (Version 2)
Quarter: 2013Q4

REPORT INFORMATION
  Report Type: Spontaneous
  Country: US (occurrence: US)
  Receive Date: 20131014
  Receipt Date: 20131112
  Transmission Date: 20140711
  Serious: No
  Sender: FDA-Public Use
  Company Number: US-VERTEX PHARMACEUTICALS INC-2013-010298

PATIENT
  Age: 59 Year
  Sex: Female
  Weight: 72.11 kg

DRUGS (3)
  1. INCIVEK [Suspect]
     Indication: HEPATITIS C
     Dosage: 750 MG, TID
     Route: 048
     Dates: start: 20130919
  2. RIBAPAK [Suspect]
     Indication: HEPATITIS C
     Dosage: 1000 MG, QD
     Route: 048
     Dates: start: 20130919
  3. PEGASYS [Suspect]
     Indication: HEPATITIS C
     Dosage: 180 ?G, QW
     Route: 058
     Dates: start: 20130919

REACTIONS (7)
  - Facial pain [Not Recovered/Not Resolved]
  - Cough [Not Recovered/Not Resolved]
  - Decreased appetite [Not Recovered/Not Resolved]
  - Constipation [Not Recovered/Not Resolved]
  - Rhinorrhoea [Not Recovered/Not Resolved]
  - Nasal congestion [Not Recovered/Not Resolved]
  - Pruritus [Not Recovered/Not Resolved]
